FAERS Safety Report 14518994 (Version 1)
Quarter: 2018Q1

REPORT INFORMATION
  Report Type: Spontaneous
  Country: ES (occurrence: ES)
  Receive Date: 20180212
  Receipt Date: 20180212
  Transmission Date: 20180509
  Serious: Yes (Death)
  Sender: FDA-Public Use
  Company Number: ES-PFIZER INC-2018060489

PATIENT
  Age: 43 Year
  Sex: Female

DRUGS (4)
  1. NOLOTIL /06276702/ [Concomitant]
     Active Substance: METAMIZOLE MAGNESIUM
     Indication: MUSCLE RUPTURE
     Dosage: 575 MG, 3X/DAY
     Route: 048
     Dates: start: 20170220
  2. ENANTYUM [Concomitant]
     Active Substance: DEXKETOPROFEN TROMETAMOL
     Indication: MUSCLE RUPTURE
     Dosage: 25 MG, 3X/DAY
     Route: 048
     Dates: start: 20170220
  3. OVOPLEX [Suspect]
     Active Substance: ETHINYL ESTRADIOL\LEVONORGESTREL
     Indication: ORAL CONTRACEPTION
     Dosage: 1 DF, 1X/DAY
     Route: 048
     Dates: start: 20170120, end: 20170227
  4. OMEPRAZOLE. [Concomitant]
     Active Substance: OMEPRAZOLE
     Indication: PROPHYLAXIS
     Dosage: 20 MG, 1X/DAY
     Route: 048
     Dates: start: 20170220

REACTIONS (1)
  - Pulmonary embolism [Fatal]

NARRATIVE: CASE EVENT DATE: 20170227
